FAERS Safety Report 5832861-3 (Version None)
Quarter: 2008Q3

REPORT INFORMATION
  Report Type: 
  Country: None (occurrence: None)
  Receive Date: 20080804
  Receipt Date: 20080723
  Transmission Date: 20090109
  Serious: Yes (Other)
  Sender: FDA-Public Use
  Company Number: US-PFIZER INC-2008062456

PATIENT
  Sex: Male

DRUGS (2)
  1. PROSTIN VR SOLUTION, STERILE [Suspect]
  2. TPN [Suspect]

REACTIONS (1)
  - POOR VENOUS ACCESS [None]
